FAERS Safety Report 12852663 (Version 2)
Quarter: 2016Q4

REPORT INFORMATION
  Report Type: Spontaneous
  Country: CA (occurrence: CA)
  Receive Date: 20161017
  Receipt Date: 20161108
  Transmission Date: 20170207
  Serious: Yes (Other)
  Sender: FDA-Public Use
  Company Number: CA-ORION CORPORATION ORION PHARMA-TREX2016-2000

PATIENT
  Age: 63 Year
  Sex: Female

DRUGS (8)
  1. FOLIC ACID. [Suspect]
     Active Substance: FOLIC ACID
     Route: 065
  2. ARAVA [Suspect]
     Active Substance: LEFLUNOMIDE
     Indication: RHEUMATOID ARTHRITIS
     Route: 065
  3. PALAFER CF [Suspect]
     Active Substance: ASCORBIC ACID\FERROUS FUMARATE\FOLIC ACID
     Route: 065
  4. METHOTREXATE (TRADE NAME UNKNOWN) [Suspect]
     Active Substance: METHOTREXATE
     Route: 048
  5. NAPROSYN [Suspect]
     Active Substance: NAPROXEN
     Route: 065
  6. PLAQUENIL [Suspect]
     Active Substance: HYDROXYCHLOROQUINE SULFATE
     Route: 065
  7. PANTOLOC [Suspect]
     Active Substance: PANTOPRAZOLE SODIUM
     Route: 065
  8. ATENOLOL. [Suspect]
     Active Substance: ATENOLOL
     Dosage: STRENGTH: 25 MG
     Route: 065

REACTIONS (4)
  - Haemoglobin decreased [Unknown]
  - Rheumatoid arthritis [Unknown]
  - Haematocrit decreased [Unknown]
  - Red blood cell count decreased [Unknown]
